FAERS Safety Report 4745123-2 (Version None)
Quarter: 2005Q3

REPORT INFORMATION
  Report Type: 
  Country: None (occurrence: None)
  Receive Date: 20050812
  Receipt Date: 20050511
  Transmission Date: 20060218
  Serious: Yes (Hospitalization, Other)
  Sender: FDA-Public Use
  Company Number: 2005-01064

PATIENT
  Age: 48 Year
  Sex: Male
  Weight: 89.3 kg

DRUGS (9)
  1. VELCADE [Suspect]
     Indication: MULTIPLE MYELOMA
     Dosage: 3.60 MG, INTRAVENOUS
     Route: 042
     Dates: start: 20050321, end: 20050401
  2. DOXIL [Suspect]
     Indication: MULTIPLE MYELOMA
     Dosage: INTRAVENOUS
     Route: 042
  3. COUMADIN [Suspect]
     Indication: ANTICOAGULANT THERAPY
     Dosage: 7.50 MG, ORAL
     Route: 048
     Dates: start: 20030615, end: 20050408
  4. KYTRIL [Concomitant]
  5. ZOMETA [Concomitant]
  6. ATIVAN [Concomitant]
  7. TYLENOL [Concomitant]
  8. DECADRON [Concomitant]
  9. IMOVANE (ZOPICLONE) [Concomitant]

REACTIONS (7)
  - COUGH [None]
  - EPISTAXIS [None]
  - FATIGUE [None]
  - GENERAL PHYSICAL HEALTH DETERIORATION [None]
  - HAEMOGLOBIN DECREASED [None]
  - INTERNATIONAL NORMALISED RATIO INCREASED [None]
  - RENAL FAILURE [None]
